FAERS Safety Report 8939198 (Version 2)
Quarter: 2013Q4

REPORT INFORMATION
  Report Type: Spontaneous
  Country: US (occurrence: US)
  Receive Date: 20121203
  Receipt Date: 20131031
  Transmission Date: 20140711
  Serious: No
  Sender: FDA-Public Use
  Company Number: US-PFIZER INC-2012299081

PATIENT
  Age: 73 Year
  Sex: Female
  Weight: 55.33 kg

DRUGS (4)
  1. SUTENT [Suspect]
     Indication: PANCREATIC NEUROENDOCRINE TUMOUR
     Dosage: 37.5 MG, 1X/DAY
     Dates: start: 201203
  2. SUTENT [Suspect]
     Dosage: 25 MG, 1X/DAY
     Route: 048
     Dates: end: 20131024
  3. ZOMETA [Concomitant]
     Dosage: UNK
  4. SANDOSTATIN [Concomitant]
     Dosage: UNK

REACTIONS (13)
  - Disease progression [Unknown]
  - Pancreatic neuroendocrine tumour [Unknown]
  - Nausea [Unknown]
  - Vomiting [Unknown]
  - Headache [Unknown]
  - Stomatitis [Unknown]
  - Glossodynia [Unknown]
  - Dry skin [Unknown]
  - Weight decreased [Unknown]
  - Dysgeusia [Unknown]
  - Dry mouth [Unknown]
  - Decreased appetite [Unknown]
  - Alopecia [Unknown]
